FAERS Safety Report 24787470 (Version 1)
Quarter: 2024Q4

REPORT INFORMATION
  Report Type: Spontaneous
  Country: US (occurrence: US)
  Receive Date: 20241230
  Receipt Date: 20241230
  Transmission Date: 20250115
  Serious: Yes (Death, Hospitalization, Other)
  Sender: Haleon PLC
  Company Number: US-HALEON-2217853

PATIENT
  Age: 11 Year
  Sex: Female

DRUGS (6)
  1. ACETAMINOPHEN [Suspect]
     Active Substance: ACETAMINOPHEN
     Indication: Headache
     Route: 048
  2. IBUPROFEN [Suspect]
     Active Substance: IBUPROFEN
     Indication: Headache
     Route: 048
  3. WATER [Suspect]
     Active Substance: WATER
     Indication: Product used for unknown indication
     Route: 048
  4. HYDROXYZINE [Suspect]
     Active Substance: HYDROXYZINE HYDROCHLORIDE
     Indication: Headache
     Route: 048
  5. SERTRALINE [Suspect]
     Active Substance: SERTRALINE HYDROCHLORIDE
     Indication: Headache
     Route: 048
  6. BUPROPION [Suspect]
     Active Substance: BUPROPION
     Indication: Headache
     Route: 048

REACTIONS (12)
  - Death [Fatal]
  - Product storage error [Unknown]
  - Vomiting [Unknown]
  - Hypoxia [Unknown]
  - Hyponatraemia [Recovered/Resolved]
  - Intracranial pressure increased [Unknown]
  - Brain oedema [Unknown]
  - Confusional state [Unknown]
  - Hallucination [Unknown]
  - Mydriasis [Unknown]
  - Seizure [Unknown]
  - Unresponsive to stimuli [Unknown]
